FAERS Safety Report 17699752 (Version 3)
Quarter: 2021Q2

REPORT INFORMATION
  Report Type: Spontaneous
  Country: US (occurrence: US)
  Receive Date: 20200423
  Receipt Date: 20210629
  Transmission Date: 20210716
  Serious: Yes (Hospitalization, Other)
  Sender: FDA-Public Use
  Company Number: US-ASTRAZENECA-2020SE51092

PATIENT
  Age: 23628 Day
  Sex: Male
  Weight: 88 kg

DRUGS (52)
  1. AMOXICILLIN. [Concomitant]
     Active Substance: AMOXICILLIN
     Indication: INFECTION
     Route: 065
     Dates: start: 2010
  2. IPRATROPIUM [Concomitant]
     Active Substance: IPRATROPIUM
  3. BENZONATATE. [Concomitant]
     Active Substance: BENZONATATE
  4. ALBUTEROL. [Concomitant]
     Active Substance: ALBUTEROL
  5. RANITIDINE. [Concomitant]
     Active Substance: RANITIDINE
  6. NEXIUM 24HR [Suspect]
     Active Substance: ESOMEPRAZOLE MAGNESIUM
     Indication: GASTROOESOPHAGEAL REFLUX DISEASE
     Route: 048
     Dates: start: 2006, end: 2009
  7. PREVACID [Suspect]
     Active Substance: LANSOPRAZOLE
     Indication: GASTROOESOPHAGEAL REFLUX DISEASE
     Dosage: FOR VARIOUS DATES AND YEARS
     Route: 065
  8. PREVACID [Suspect]
     Active Substance: LANSOPRAZOLE
     Indication: GASTROOESOPHAGEAL REFLUX DISEASE
     Route: 065
     Dates: start: 2009
  9. LEVOFLOXACIN. [Concomitant]
     Active Substance: LEVOFLOXACIN
     Indication: INFECTION
     Route: 065
     Dates: start: 2011, end: 2012
  10. MELOXICAM. [Concomitant]
     Active Substance: MELOXICAM
     Indication: PAIN
     Route: 065
     Dates: start: 20111101
  11. VITAMIN B2 [Concomitant]
     Active Substance: RIBOFLAVIN
     Indication: VITAMIN B COMPLEX DEFICIENCY
     Route: 065
     Dates: start: 2020
  12. PENICILLIN VK [Concomitant]
     Active Substance: PENICILLIN V POTASSIUM
  13. NEXIUM [Suspect]
     Active Substance: ESOMEPRAZOLE MAGNESIUM
     Indication: GASTROOESOPHAGEAL REFLUX DISEASE
     Route: 048
     Dates: start: 2006, end: 2009
  14. PENICILLIN [Concomitant]
     Active Substance: PENICILLIN
     Indication: INFECTION
     Route: 065
     Dates: start: 20100315, end: 20100712
  15. AZITHROMYCIN ANHYDROUS. [Concomitant]
     Active Substance: AZITHROMYCIN ANHYDROUS
     Indication: INFECTION
     Route: 065
     Dates: start: 20111023
  16. VITAMIN D [Concomitant]
     Active Substance: VITAMIN D NOS
     Indication: VITAMIN D DECREASED
     Route: 065
     Dates: start: 2020
  17. RESTASIS [Concomitant]
     Active Substance: CYCLOSPORINE
  18. ONDANSETRON [Concomitant]
     Active Substance: ONDANSETRON
  19. BETAMETHASONE. [Concomitant]
     Active Substance: BETAMETHASONE
  20. PATANOL [Concomitant]
     Active Substance: OLOPATADINE HYDROCHLORIDE
  21. ZOLPIDEM [Concomitant]
     Active Substance: ZOLPIDEM TARTRATE
  22. PROPOFOL. [Concomitant]
     Active Substance: PROPOFOL
  23. OMEGA XL [Concomitant]
     Active Substance: DIETARY SUPPLEMENT
     Indication: PAIN
     Route: 065
     Dates: start: 2015
  24. NYSTATIN. [Concomitant]
     Active Substance: NYSTATIN
  25. TRIAMCINOLONE [Concomitant]
     Active Substance: TRIAMCINOLONE
  26. XELODA [Concomitant]
     Active Substance: CAPECITABINE
  27. ADVAIR HFA [Concomitant]
     Active Substance: FLUTICASONE PROPIONATE\SALMETEROL XINAFOATE
  28. SULFACETAMIDE SODIUM. [Concomitant]
     Active Substance: SULFACETAMIDE SODIUM
  29. STIOLTO RESPIMAT [Concomitant]
     Active Substance: OLODATEROL HYDROCHLORIDE\TIOTROPIUM BROMIDE MONOHYDRATE
  30. TRAMADOL. [Concomitant]
     Active Substance: TRAMADOL
     Indication: PAIN
     Route: 065
     Dates: start: 20120203
  31. ASPIRIN. [Concomitant]
     Active Substance: ASPIRIN
     Indication: PAIN
     Route: 065
     Dates: start: 2020
  32. FLUOCINONIDE. [Concomitant]
     Active Substance: FLUOCINONIDE
  33. HYDROCODONE?ACETAMINOPHEN [Concomitant]
     Active Substance: ACETAMINOPHEN\HYDROCODONE
  34. VALACYCLOVIR [Concomitant]
     Active Substance: VALACYCLOVIR HYDROCHLORIDE
  35. PREDNISONE. [Concomitant]
     Active Substance: PREDNISONE
  36. OMEGA 3 [Concomitant]
     Active Substance: OMEGA-3 FATTY ACIDS
  37. IPRATROPIUM [Concomitant]
     Active Substance: IPRATROPIUM
  38. TOBRAMYCIN. [Concomitant]
     Active Substance: TOBRAMYCIN
     Indication: INFECTION
     Route: 065
     Dates: start: 20111028
  39. ALEVE [Concomitant]
     Active Substance: NAPROXEN SODIUM
     Indication: PAIN
     Dosage: PERIODICALLY
     Route: 065
  40. PROAIR HFA [Concomitant]
     Active Substance: ALBUTEROL SULFATE
  41. POLYMYXIN [Concomitant]
     Active Substance: POLYMYXIN
     Indication: INFECTION
     Route: 065
     Dates: start: 20111023
  42. SPIRIVA [Concomitant]
     Active Substance: TIOTROPIUM BROMIDE MONOHYDRATE
  43. LOTEMAX [Concomitant]
     Active Substance: LOTEPREDNOL ETABONATE
  44. AUGMENTIN [Concomitant]
     Active Substance: AMOXICILLIN\CLAVULANATE POTASSIUM
  45. TERBINAFINE. [Concomitant]
     Active Substance: TERBINAFINE
  46. NAFTIN [Concomitant]
     Active Substance: NAFTIFINE HYDROCHLORIDE
  47. CLOBETASOL [Concomitant]
     Active Substance: CLOBETASOL
  48. MUPIROCIN. [Concomitant]
     Active Substance: MUPIROCIN
  49. NEXIUM [Suspect]
     Active Substance: ESOMEPRAZOLE MAGNESIUM
     Indication: GASTROOESOPHAGEAL REFLUX DISEASE
     Dosage: FOR VARIOUS DATES AND YEARS
     Route: 048
  50. VIGAMOX [Concomitant]
     Active Substance: MOXIFLOXACIN HYDROCHLORIDE
     Indication: INFECTION
     Route: 065
     Dates: start: 2010, end: 2011
  51. CIPROFLOXACIN. [Concomitant]
     Active Substance: CIPROFLOXACIN
     Indication: INFECTION
     Route: 065
     Dates: start: 2010
  52. UREA. [Concomitant]
     Active Substance: UREA

REACTIONS (4)
  - Renal failure [Unknown]
  - Renal injury [Unknown]
  - Rebound acid hypersecretion [Unknown]
  - Gastric cancer [Not Recovered/Not Resolved]

NARRATIVE: CASE EVENT DATE: 20100808
